FAERS Safety Report 7512576-6 (Version None)
Quarter: 2011Q2

REPORT INFORMATION
  Report Type: 
  Country: None (occurrence: None)
  Receive Date: 20110520
  Receipt Date: 20110510
  Transmission Date: 20111010
  Serious: Yes (Hospitalization)
  Sender: FDA-Public Use
  Company Number: B0719581A

PATIENT
  Age: 51 Year
  Sex: Female

DRUGS (3)
  1. LAMOTRIGINE [Suspect]
     Indication: CONVULSION
  2. CARBAMAZEPINE [Concomitant]
  3. PHENYTOIN [Suspect]

REACTIONS (14)
  - RASH ERYTHEMATOUS [None]
  - RASH PAPULAR [None]
  - ALANINE AMINOTRANSFERASE INCREASED [None]
  - PYREXIA [None]
  - RASH [None]
  - CHILLS [None]
  - RASH MORBILLIFORM [None]
  - DRUG ERUPTION [None]
  - HEADACHE [None]
  - FACE OEDEMA [None]
  - ASPARTATE AMINOTRANSFERASE INCREASED [None]
  - BLOOD ALKALINE PHOSPHATASE INCREASED [None]
  - SKIN HYPERPIGMENTATION [None]
  - DRUG RASH WITH EOSINOPHILIA AND SYSTEMIC SYMPTOMS [None]
